FAERS Safety Report 13665215 (Version 1)
Quarter: 2017Q2

REPORT INFORMATION
  Report Type: Report from Study
  Country: US (occurrence: US)
  Receive Date: 20170619
  Receipt Date: 20170619
  Transmission Date: 20170830
  Serious: Yes (Death)
  Sender: FDA-Public Use
  Company Number: US-PFIZER INC-2017263549

PATIENT

DRUGS (3)
  1. RILOTUMUMAB [Concomitant]
     Active Substance: RILOTUMUMAB
     Indication: SMALL CELL LUNG CANCER EXTENSIVE STAGE
     Dosage: 15 MG/KG, EVERY 3 WEEKS (60-MINUTE INTRAVENOUS INFUSIONS ON DAY 2 OF CYCLE 1 AND ON DAY 1 OF )
     Route: 042
  2. ETOPOSIDE. [Suspect]
     Active Substance: ETOPOSIDE
     Indication: SMALL CELL LUNG CANCER EXTENSIVE STAGE
     Dosage: 100 MG/M2, ON DAY 1, 2 AND 3 OF EACH 21-DAY CYCLE
     Route: 042
  3. CARBOPLATIN. [Suspect]
     Active Substance: CARBOPLATIN
     Indication: SMALL CELL LUNG CANCER EXTENSIVE STAGE
     Dosage: AREA UNDER THE CURVE, 5 MG/ML.MIN OVER 30 MINUTES, ON DAY 1 OF EACH 21-DAY CYCLE
     Route: 042

REACTIONS (1)
  - Pneumonia [Fatal]
